FAERS Safety Report 20215055 (Version 1)
Quarter: 2021Q4

REPORT INFORMATION
  Report Type: Spontaneous
  Country: US (occurrence: US)
  Receive Date: 20211222
  Receipt Date: 20211222
  Transmission Date: 20220303
  Serious: Yes (Other)
  Sender: FDA-Public Use
  Company Number: US-AMGEN-USASP2021197158

PATIENT
  Sex: Female

DRUGS (4)
  1. PROLIA [Suspect]
     Active Substance: DENOSUMAB
     Indication: Product used for unknown indication
     Dosage: UNK
     Route: 065
  2. XELJANZ [Suspect]
     Active Substance: TOFACITINIB CITRATE
     Indication: Product used for unknown indication
     Dosage: 5 MILLIGRAM, BID
     Route: 048
  3. COVID-19 VACCINE [Concomitant]
  4. INFLUENZA VIRUS VACCINE [Concomitant]
     Active Substance: INFLUENZA VIRUS VACCINE

REACTIONS (9)
  - Arthropathy [Unknown]
  - Blood iron abnormal [Unknown]
  - Thyroid disorder [Unknown]
  - Illness [Recovered/Resolved]
  - Nausea [Unknown]
  - Arthritis [Unknown]
  - Abdominal discomfort [Unknown]
  - Vomiting [Unknown]
  - Urinary tract infection [Unknown]
